FAERS Safety Report 17628627 (Version 4)
Quarter: 2020Q3

REPORT INFORMATION
  Report Type: Spontaneous
  Country: DK (occurrence: DK)
  Receive Date: 20200406
  Receipt Date: 20200916
  Transmission Date: 20201102
  Serious: Yes (Death, Other)
  Sender: FDA-Public Use
  Company Number: DK-ROCHE-2573743

PATIENT
  Age: 58 Year
  Sex: Male

DRUGS (3)
  1. ZELBORAF [Suspect]
     Active Substance: VEMURAFENIB
     Indication: METASTATIC MALIGNANT MELANOMA
     Dosage: VIA NG (NASOGASTRIC) TUBE
     Route: 050
  2. COTELLIC [Suspect]
     Active Substance: COBIMETINIB
     Indication: PRODUCT USED FOR UNKNOWN INDICATION
     Route: 048
  3. VEPICOMBIN [PHENOXYMETHYLPENICILLIN POTASSIUM] [Suspect]
     Active Substance: PENICILLIN V POTASSIUM
     Indication: PRODUCT USED FOR UNKNOWN INDICATION
     Route: 065

REACTIONS (14)
  - Dysphagia [Unknown]
  - Hypertriglyceridaemia [Unknown]
  - Product dose omission issue [Unknown]
  - Rash maculo-papular [Unknown]
  - Intentional product use issue [Unknown]
  - Hypoalbuminaemia [Unknown]
  - Abdominal neoplasm [Unknown]
  - Pruritus [Unknown]
  - Condition aggravated [Unknown]
  - Off label use [Unknown]
  - Drug ineffective [Unknown]
  - Hypocalcaemia [Unknown]
  - Death [Fatal]
  - Central nervous system lesion [Unknown]

NARRATIVE: CASE EVENT DATE: 20200322
